FAERS Safety Report 17047044 (Version 1)
Quarter: 2019Q4

REPORT INFORMATION
  Report Type: Spontaneous
  Country: US (occurrence: US)
  Receive Date: 20191119
  Receipt Date: 20191119
  Transmission Date: 20200122
  Serious: No
  Sender: FDA-Public Use
  Company Number: US-ACCORD-073230

PATIENT
  Age: 68 Year
  Sex: Female
  Weight: 51.26 kg

DRUGS (7)
  1. LOSARTAN. [Concomitant]
     Active Substance: LOSARTAN
     Dosage: 75MG/ 25MG+50MG/ONCE A DAY
  2. DIPHENHYDRAMINE/PARACETAMOL [Concomitant]
  3. GABAPENTIN. [Concomitant]
     Active Substance: GABAPENTIN
     Dosage: 1200MG/ 400MG CAPSULES /THREE TIMES A DAY
  4. HYDROCHLOROTHIAZIDE. [Suspect]
     Active Substance: HYDROCHLOROTHIAZIDE
     Indication: BLOOD PRESSURE MEASUREMENT
     Route: 048
     Dates: start: 2015
  5. NAPROXEN. [Concomitant]
     Active Substance: NAPROXEN
     Dosage: 500MG/ORAL/ONCE A DAY AS NEEDED
  6. CYCLOBENZAPRINE. [Concomitant]
     Active Substance: CYCLOBENZAPRINE
     Dosage: 10MG/ORAL/AS NEEDED
     Route: 048
  7. MAGNESIUM HYDROXIDE. [Concomitant]
     Active Substance: MAGNESIUM HYDROXIDE

REACTIONS (5)
  - Asthenia [Recovering/Resolving]
  - Blood chloride decreased [Recovering/Resolving]
  - Muscle spasms [Recovering/Resolving]
  - Confusional state [Recovering/Resolving]
  - Blood sodium decreased [Recovering/Resolving]

NARRATIVE: CASE EVENT DATE: 201808
